FAERS Safety Report 21073211 (Version 7)
Quarter: 2023Q1

REPORT INFORMATION
  Report Type: Report from Study
  Country: BR (occurrence: BR)
  Receive Date: 20220712
  Receipt Date: 20230125
  Transmission Date: 20230418
  Serious: Yes (Hospitalization, Other)
  Sender: FDA-Public Use
  Company Number: BR-JNJFOC-20220714188

PATIENT
  Age: 6 Year
  Sex: Male
  Weight: 27.8 kg

DRUGS (3)
  1. INFLIXIMAB [Suspect]
     Active Substance: INFLIXIMAB
     Indication: Colitis ulcerative
     Route: 041
  2. REMICADE [Suspect]
     Active Substance: INFLIXIMAB
     Indication: Colitis ulcerative
     Dosage: 3 AMPOULES
     Route: 041
     Dates: start: 20211028
  3. REMICADE [Suspect]
     Active Substance: INFLIXIMAB
     Indication: Crohn^s disease
     Dosage: 3 VIALS
     Route: 041
     Dates: start: 20211020

REACTIONS (11)
  - Infective uveitis [Unknown]
  - Colitis ulcerative [Not Recovered/Not Resolved]
  - Crohn^s disease [Unknown]
  - Anaemia [Unknown]
  - Arthralgia [Unknown]
  - Conjunctivitis [Unknown]
  - Rheumatic disorder [Unknown]
  - Aphthous ulcer [Unknown]
  - Skin irritation [Unknown]
  - Off label use [Unknown]
  - Drug ineffective [Unknown]
